FAERS Safety Report 7951480-6 (Version None)
Quarter: 2011Q4

REPORT INFORMATION
  Report Type: 
  Country: None (occurrence: None)
  Receive Date: 20111201
  Receipt Date: 20111122
  Transmission Date: 20120403
  Serious: Yes (Life-Threatening, Other)
  Sender: FDA-Public Use
  Company Number: JP-GENZYME-THYM-1002933

PATIENT
  Sex: Male
  Weight: 60 kg

DRUGS (61)
  1. PREDNISOLONE [Concomitant]
     Indication: PREMEDICATION
     Dosage: UNK
     Dates: start: 20100917, end: 20101026
  2. AMPHOTERICIN B [Concomitant]
     Indication: CANDIDIASIS
     Dosage: UNK
     Dates: start: 20100917, end: 20101009
  3. VANCOMYCIN [Concomitant]
     Dosage: UNK
     Dates: start: 20100917, end: 20101111
  4. SULFAMETHOPRIM [Concomitant]
     Indication: INFECTION PROPHYLAXIS
     Dosage: UNK
     Dates: start: 20100917
  5. ACYCLOVIR [Concomitant]
     Indication: MENINGITIS
     Dosage: UNK
     Dates: start: 20100917, end: 20110111
  6. TACROLIMUS [Concomitant]
     Dosage: UNK
     Dates: start: 20101021, end: 20101122
  7. FLUCONAZOLE [Concomitant]
     Indication: MENINGITIS
  8. AMIKACIN SULFATE [Concomitant]
     Indication: CANDIDIASIS
  9. GLYCYRRHIZIC ACIS DL-METHIONINE COMBINED DRUG [Concomitant]
     Indication: LIVER DISORDER
  10. FOSCARNET SODIUM [Concomitant]
     Indication: INFECTION PROPHYLAXIS
     Dosage: UNK
     Dates: start: 20101018, end: 20101021
  11. VORICONAZOLE [Concomitant]
     Indication: ASPERGILLOSIS
  12. THYMOGLOBULIN [Suspect]
     Indication: APLASTIC ANAEMIA
     Dosage: 200 MG, QD
     Route: 042
     Dates: start: 20091207, end: 20091211
  13. URSODIOL [Concomitant]
     Indication: LIVER DISORDER
     Dosage: UNK
     Dates: start: 20100917
  14. ACYCLOVIR [Concomitant]
     Indication: CANDIDIASIS
  15. FLUCONAZOLE [Concomitant]
     Indication: INFECTION PROPHYLAXIS
  16. DIPHENHYDRAMINE DIPROPHYLLINE [Concomitant]
     Indication: CANDIDIASIS
  17. GANCICLOVIR [Concomitant]
     Indication: INFECTION PROPHYLAXIS
     Dosage: UNK
     Dates: start: 20101021, end: 20101115
  18. LEVOFLOXACIN [Concomitant]
     Indication: INFECTION PROPHYLAXIS
     Dosage: UNK
     Dates: start: 20101115, end: 20101123
  19. VORICONAZOLE [Concomitant]
     Indication: CANDIDIASIS
  20. CLARITHROMYCIN [Concomitant]
     Indication: INFECTION PROPHYLAXIS
     Dosage: UNK
     Dates: start: 20101127
  21. MEROPENEM [Concomitant]
     Indication: INFECTION PROPHYLAXIS
     Dosage: UNK
     Dates: start: 20100917, end: 20101102
  22. METHOTREXATE [Concomitant]
     Indication: PROPHYLAXIS AGAINST GRAFT VERSUS HOST DISEASE
     Dosage: UNK
     Dates: start: 20100918, end: 20100923
  23. CEFCAPENE PIVOXIL HYDROCHLORIDE [Concomitant]
     Indication: INFECTION PROPHYLAXIS
     Dosage: UNK
     Dates: start: 20101012, end: 20110118
  24. VALGANCICLOVIR HYDROCHLORIDE [Concomitant]
     Indication: INFECTION PROPHYLAXIS
     Dosage: UNK
     Dates: start: 20101115, end: 20101214
  25. FOSFOMYCIN SODIUM [Concomitant]
     Indication: INFECTION PROPHYLAXIS
     Dosage: UNK
     Dates: start: 20100917, end: 20101010
  26. FILGRASTIM [Concomitant]
     Indication: APLASTIC ANAEMIA
     Dosage: UNK
     Dates: start: 20100919, end: 20101008
  27. AMIKACIN SULFATE [Concomitant]
     Indication: ASPERGILLOSIS
  28. LOXOPROFEN SODIUM [Concomitant]
     Indication: PROPHYLAXIS
     Dosage: UNK
     Dates: start: 20101020, end: 20101112
  29. DIPHENHYDRAMINE DIPROPHYLLINE [Concomitant]
     Indication: PROPHYLAXIS
     Dosage: UNK
     Dates: start: 20101030, end: 20101214
  30. DIPHENHYDRAMINE DIPROPHYLLINE [Concomitant]
     Indication: ASPERGILLOSIS
  31. CEFOZOPRAN HYDROCHLORIDE [Concomitant]
     Indication: INFECTION PROPHYLAXIS
     Dosage: UNK
     Dates: start: 20101018, end: 20110108
  32. PENTAMIDINE ISETHIONATE [Concomitant]
     Indication: INFECTION PROPHYLAXIS
     Dosage: UNK
     Dates: start: 20101023, end: 20101101
  33. ACETAMINOPHEN [Concomitant]
     Indication: PROPHYLAXIS
     Dosage: UNK
     Dates: start: 20101104, end: 20101214
  34. RABEPRAZOLE SODIUM [Concomitant]
     Indication: PROPHYLAXIS
     Dosage: UNK
     Dates: start: 20100917, end: 20101026
  35. AMPHOTERICIN B [Concomitant]
     Indication: ASPERGILLOSIS
  36. FILGRASTIM [Concomitant]
     Dosage: UNK
     Dates: start: 20101009, end: 20101220
  37. MINOCYCLINE HYDROCHLORIDE [Concomitant]
     Indication: INFECTION PROPHYLAXIS
     Dosage: UNK
     Dates: start: 20100919, end: 20101026
  38. GLYCYRRHIZIN GLYCINE CYSTEINE COMBINED DRUG [Concomitant]
     Indication: LIVER DISORDER
     Dosage: UNK
     Dates: start: 20100926, end: 20101202
  39. DIPHENHYDRAMINE DIPROPHYLLINE [Concomitant]
     Indication: MENINGITIS
  40. MICAFUNGIN SODIUM [Concomitant]
     Indication: MENINGITIS
     Dosage: UNK
     Dates: start: 20101022, end: 20110108
  41. MICAFUNGIN SODIUM [Concomitant]
     Indication: ASPERGILLOSIS
  42. VORICONAZOLE [Concomitant]
     Indication: MENINGITIS
  43. THYMOGLOBULIN [Suspect]
     Indication: BONE MARROW CONDITIONING REGIMEN
     Dosage: 225 MG, QD
     Route: 042
     Dates: start: 20100911, end: 20100914
  44. AMPHOTERICIN B [Concomitant]
     Indication: MENINGITIS
     Dosage: UNK
     Dates: start: 20100917, end: 20101227
  45. VANCOMYCIN [Concomitant]
     Indication: INFECTION PROPHYLAXIS
     Dosage: UNK
     Dates: start: 20100917, end: 20101012
  46. DEFEROXAMINE MESYLATE [Concomitant]
     Indication: PROPHYLAXIS
     Dosage: UNK
     Dates: start: 20100917, end: 20101126
  47. METHYLPREDNISOLONE SODIUM SUCCINATE [Concomitant]
     Indication: PROPHYLAXIS AGAINST GRAFT VERSUS HOST DISEASE
     Dosage: UNK
     Dates: start: 20100917, end: 20100917
  48. HYDROCORTISONE SODIUM SUCCINATE [Concomitant]
     Indication: PREMEDICATION
  49. FLUCONAZOLE [Concomitant]
     Indication: ASPERGILLOSIS
  50. AMIKACIN SULFATE [Concomitant]
     Indication: MENINGITIS
     Dosage: UNK
     Dates: start: 20100917, end: 20101010
  51. VORICONAZOLE [Concomitant]
     Indication: PROPHYLAXIS
     Dosage: UNK
     Dates: start: 20101124
  52. HYDROXYZINE HYDROCHLORIDE [Concomitant]
     Indication: PREMEDICATION
     Dosage: UNK
     Dates: start: 20100917, end: 20100917
  53. METHYLPREDNISOLONE SODIUM SUCCINATE [Concomitant]
     Indication: PREMEDICATION
     Dosage: UNK
     Dates: start: 20100911, end: 20100914
  54. FLURBIPROFEN [Concomitant]
     Indication: PROPHYLAXIS AGAINST GRAFT VERSUS HOST DISEASE
     Dosage: UNK
     Dates: start: 20100918, end: 20101024
  55. HYDROCORTISONE SODIUM SUCCINATE [Concomitant]
     Indication: PROPHYLAXIS AGAINST GRAFT VERSUS HOST DISEASE
     Dosage: UNK
     Dates: start: 20100919, end: 20110106
  56. GLYCYRRHIZIC ACIS DL-METHIONINE COMBINED DRUG [Concomitant]
     Indication: PROPHYLAXIS
     Dosage: UNK
     Dates: start: 20101019, end: 20101026
  57. ACYCLOVIR [Concomitant]
     Indication: ASPERGILLOSIS
  58. TACROLIMUS [Concomitant]
     Indication: PROPHYLAXIS AGAINST GRAFT VERSUS HOST DISEASE
     Dosage: UNK
     Dates: start: 20100917
  59. DANAPAROID SODIUM [Concomitant]
     Indication: PROPHYLAXIS
     Dosage: UNK
     Dates: start: 20100917, end: 20101124
  60. FLUCONAZOLE [Concomitant]
     Indication: CANDIDIASIS
  61. MICAFUNGIN SODIUM [Concomitant]
     Indication: CANDIDIASIS

REACTIONS (8)
  - VIRAL INFECTION [None]
  - BACTERIAL INFECTION [None]
  - PYREXIA [None]
  - CHRONIC GRAFT VERSUS HOST DISEASE [None]
  - ASPERGILLOSIS [None]
  - CANDIDIASIS [None]
  - CYTOMEGALOVIRUS INFECTION [None]
  - LIVER DISORDER [None]
